FAERS Safety Report 7359355-0 (Version None)
Quarter: 2011Q1

REPORT INFORMATION
  Report Type: 
  Country: None (occurrence: None)
  Receive Date: 20110317
  Receipt Date: 20090916
  Transmission Date: 20110831
  Serious: No
  Sender: FDA-Public Use
  Company Number: US-PFIZER INC-2009250240

PATIENT
  Sex: Female

DRUGS (7)
  1. NEBIVOLOL [Suspect]
  2. LISINOPRIL [Suspect]
  3. NADOLOL [Suspect]
  4. BENICAR [Suspect]
  5. TOPROL-XL [Suspect]
  6. ATENOLOL [Suspect]
  7. NORVASC [Suspect]

REACTIONS (1)
  - UNEVALUABLE EVENT [None]
